FAERS Safety Report 8141674-1 (Version None)
Quarter: 2012Q1

REPORT INFORMATION
  Report Type: 
  Country: None (occurrence: None)
  Receive Date: 20120216
  Receipt Date: 20120208
  Transmission Date: 20120608
  Serious: Yes (Death, Hospitalization)
  Sender: FDA-Public Use
  Company Number: IT-BRISTOL-MYERS SQUIBB COMPANY-16373367

PATIENT
  Age: 75 Year
  Sex: Male

DRUGS (6)
  1. RANIDIL [Concomitant]
     Dosage: INJ
     Route: 042
  2. FLUOROURACIL [Concomitant]
     Indication: COLON CANCER STAGE IV
     Dates: start: 20111122, end: 20111220
  3. DEXAMETHASONE SODIUM PHOSPHATE [Concomitant]
     Dosage: INJ
     Route: 042
  4. ERBITUX [Suspect]
     Indication: COLON CANCER STAGE IV
     Route: 042
     Dates: start: 20111205
  5. KYTRIL [Concomitant]
  6. OXALIPLATIN [Concomitant]
     Dates: start: 20111122, end: 20111220

REACTIONS (2)
  - ANOREXIA NERVOSA [None]
  - GENERAL PHYSICAL HEALTH DETERIORATION [None]
